FAERS Safety Report 13368713 (Version 8)
Quarter: 2021Q2

REPORT INFORMATION
  Report Type: Spontaneous
  Country: US (occurrence: US)
  Receive Date: 20170324
  Receipt Date: 20210427
  Transmission Date: 20210716
  Serious: Yes (Death, Hospitalization, Other)
  Sender: FDA-Public Use
  Company Number: US-PFIZER INC-2017128030

PATIENT
  Age: 60 Year
  Sex: Female
  Weight: 95 kg

DRUGS (2)
  1. XELJANZ XR [Suspect]
     Active Substance: TOFACITINIB CITRATE
     Indication: RHEUMATOID ARTHRITIS
     Dosage: 11 MG, 1X/DAY
     Route: 048
  2. XELJANZ XR [Suspect]
     Active Substance: TOFACITINIB CITRATE
     Dosage: 11 MG, 1X/DAY
     Route: 048

REACTIONS (10)
  - Respiratory tract infection [Recovered/Resolved]
  - Daydreaming [Unknown]
  - Toothache [Unknown]
  - Illness [Unknown]
  - Influenza [Unknown]
  - Musculoskeletal stiffness [Unknown]
  - Death [Fatal]
  - Swelling face [Recovered/Resolved]
  - Abscess jaw [Unknown]
  - Respiratory disorder [Unknown]

NARRATIVE: CASE EVENT DATE: 20170316
